FAERS Safety Report 11507153 (Version 1)
Quarter: 2015Q3

REPORT INFORMATION
  Report Type: Spontaneous
  Country: US (occurrence: None)
  Receive Date: 20150914
  Receipt Date: 20150914
  Transmission Date: 20151125
  Serious: Yes (Hospitalization)
  Sender: FDA-Public Use
  Company Number: None

PATIENT
  Sex: Male

DRUGS (1)
  1. SUTENT [Suspect]
     Active Substance: SUNITINIB MALATE
     Indication: PANCREATIC DISORDER
     Route: 048
     Dates: start: 20150729

REACTIONS (3)
  - Liver disorder [None]
  - Malaise [None]
  - Drug ineffective [None]

NARRATIVE: CASE EVENT DATE: 2015
